FAERS Safety Report 4627004-8 (Version None)
Quarter: 2005Q1

REPORT INFORMATION
  Report Type: 
  Country: None (occurrence: None)
  Receive Date: 20050331
  Receipt Date: 20050329
  Transmission Date: 20050727
  Serious: Yes (Hospitalization)
  Sender: FDA-Public Use
  Company Number: 2004UW26244

PATIENT
  Age: 64 Year
  Sex: Male
  Weight: 91.8 kg

DRUGS (5)
  1. IRESSA [Suspect]
     Indication: TRANSITIONAL CELL CARCINOMA
     Dosage: 250 MG DAILY PO
     Route: 048
     Dates: start: 20041217, end: 20041223
  2. TOPOTECAN [Suspect]
     Indication: TRANSITIONAL CELL CARCINOMA
     Dosage: 131 MG DAILY IV
     Route: 042
     Dates: start: 20041213, end: 20041220
  3. TOPOTECAN [Suspect]
     Indication: METASTASIS
     Dosage: 4 MG/M2 IV
     Route: 042
     Dates: start: 20050120
  4. TOPOTECAN [Suspect]
     Indication: TRANSITIONAL CELL CARCINOMA
     Dosage: 4 MG/M2 IV
     Route: 042
     Dates: start: 20050120
  5. COUMADIN [Concomitant]

REACTIONS (6)
  - INTERNATIONAL NORMALISED RATIO INCREASED [None]
  - LABORATORY TEST ABNORMAL [None]
  - NEUTROPENIA [None]
  - RECTAL HAEMORRHAGE [None]
  - THROMBOCYTOPENIA [None]
  - WHITE BLOOD CELL COUNT DECREASED [None]
